FAERS Safety Report 5897889-6 (Version None)
Quarter: 2008Q3

REPORT INFORMATION
  Report Type: 
  Country: None (occurrence: None)
  Receive Date: 20080925
  Receipt Date: 20080818
  Transmission Date: 20090109
  Serious: Yes (Other)
  Sender: FDA-Public Use
  Company Number: US-BAYER-200827439NA

PATIENT
  Age: 51 Year
  Sex: Female
  Weight: 104 kg

DRUGS (2)
  1. CLIMARA PRO [Suspect]
     Indication: HORMONE REPLACEMENT THERAPY
     Route: 062
  2. TIMOLOL [Concomitant]
     Indication: GLAUCOMA
     Route: 047

REACTIONS (3)
  - CHOLECYSTECTOMY [None]
  - GENITAL HAEMORRHAGE [None]
  - PHARMACEUTICAL PRODUCT COMPLAINT [None]
